FAERS Safety Report 10610650 (Version 3)
Quarter: 2015Q1

REPORT INFORMATION
  Report Type: Report from Study
  Country: HU (occurrence: HU)
  Receive Date: 20141126
  Receipt Date: 20150119
  Transmission Date: 20150720
  Serious: Yes (Other)
  Sender: FDA-Public Use
  Company Number: HU-BAYER-2014-160417

PATIENT
  Age: 59 Year
  Sex: Male
  Weight: 88 kg

DRUGS (2)
  1. NEXAVAR [Suspect]
     Active Substance: SORAFENIB
     Indication: HEPATOCELLULAR CARCINOMA
     Dosage: 2X1
     Dates: start: 20141117
  2. NEXAVAR [Suspect]
     Active Substance: SORAFENIB
     Indication: HEPATOCELLULAR CARCINOMA
     Dosage: DAILY DOSE 800 MG
     Route: 048
     Dates: start: 20140929, end: 20141027

REACTIONS (7)
  - Skin reaction [None]
  - Diarrhoea [Recovering/Resolving]
  - Proctitis [Not Recovered/Not Resolved]
  - Decreased appetite [None]
  - Haemorrhoids [Not Recovered/Not Resolved]
  - Pruritus [None]
  - Skin reaction [None]

NARRATIVE: CASE EVENT DATE: 20141013
